FAERS Safety Report 16845083 (Version 1)
Quarter: 2019Q3

REPORT INFORMATION
  Report Type: Spontaneous
  Country: SE (occurrence: SE)
  Receive Date: 20190924
  Receipt Date: 20190924
  Transmission Date: 20191005
  Serious: Yes (Other)
  Sender: FDA-Public Use
  Company Number: SE-TEVA-2019-SE-1113275

PATIENT
  Sex: Female

DRUGS (1)
  1. STESOLID REKTAL PREFILL [Suspect]
     Active Substance: DIAZEPAM
     Indication: GASTROINTESTINAL PAIN
     Dosage: ONE SYRINGE AND AS LOW DOSE AS POSSIBLE WHEN NEEDED
     Route: 054

REACTIONS (2)
  - Foreign body in gastrointestinal tract [Unknown]
  - Syringe issue [Unknown]
